FAERS Safety Report 4345898-0 (Version None)
Quarter: 2004Q2

REPORT INFORMATION
  Report Type: 
  Country: None (occurrence: None)
  Receive Date: 20040423
  Receipt Date: 20040423
  Transmission Date: 20050107
  Serious: Yes (Life-Threatening, Hospitalization)
  Sender: FDA-Public Use
  Company Number: None

PATIENT
  Age: 68 Year
  Sex: Female
  Weight: 84 kg

DRUGS (3)
  1. VITAMIN K INJECTABLE 10 MG/ML ABBOTT [Suspect]
     Indication: EPISTAXIS
     Dosage: 5 MG TODAY ONLY INTRAVENOUS
     Route: 042
     Dates: start: 20040422, end: 20040422
  2. VITAMIN K INJECTABLE 10 MG/ML ABBOTT [Suspect]
     Indication: HYPERCOAGULATION
     Dosage: 5 MG TODAY ONLY INTRAVENOUS
     Route: 042
     Dates: start: 20040422, end: 20040422
  3. VITAMIN K INJECTABLE 10 MG/ML ABBOTT [Suspect]
     Indication: INTERNATIONAL NORMALISED RATIO INCREASED
     Dosage: 5 MG TODAY ONLY INTRAVENOUS
     Route: 042
     Dates: start: 20040422, end: 20040422

REACTIONS (2)
  - ANAPHYLACTIC REACTION [None]
  - PULSE ABSENT [None]
